FAERS Safety Report 13189146 (Version 1)
Quarter: 2017Q1

REPORT INFORMATION
  Report Type: Spontaneous
  Country: US (occurrence: US)
  Receive Date: 20170203
  Receipt Date: 20170203
  Transmission Date: 20170428
  Serious: Yes (Life-Threatening, Hospitalization)
  Sender: FDA-Public Use
  Company Number: None

PATIENT
  Age: 64 Year
  Sex: Male
  Weight: 99.1 kg

DRUGS (1)
  1. TICAGRELOR [Suspect]
     Active Substance: TICAGRELOR
     Indication: ACUTE CORONARY SYNDROME
     Route: 048
     Dates: start: 20170123, end: 20170123

REACTIONS (4)
  - Atrioventricular block complete [None]
  - Rhythm idioventricular [None]
  - Dizziness [None]
  - Dyspnoea [None]

NARRATIVE: CASE EVENT DATE: 20170123
